FAERS Safety Report 6741482-X (Version None)
Quarter: 2010Q2

REPORT INFORMATION
  Report Type: 
  Country: None (occurrence: None)
  Receive Date: 20100526
  Receipt Date: 20100521
  Transmission Date: 20101027
  Serious: Yes (Death)
  Sender: FDA-Public Use
  Company Number: PHHY2010US33344

PATIENT

DRUGS (1)
  1. TEGRETOL [Suspect]

REACTIONS (2)
  - HEPATIC NECROSIS [None]
  - INTESTINAL FUNCTIONAL DISORDER [None]
